FAERS Safety Report 9782502 (Version 4)
Quarter: 2015Q4

REPORT INFORMATION
  Report Type: Report from Study
  Country: JP (occurrence: JP)
  Receive Date: 20131226
  Receipt Date: 20151002
  Transmission Date: 20160305
  Serious: Yes (Death, Hospitalization)
  Sender: FDA-Public Use
  Company Number: PHHY2013JP149692

PATIENT
  Age: 63 Year
  Sex: Female
  Weight: 52 kg

DRUGS (16)
  1. CLOZARIL [Suspect]
     Active Substance: CLOZAPINE
     Dosage: 75 MG, QD
     Route: 048
     Dates: start: 20131205, end: 20131211
  2. PALIPERIDONE [Concomitant]
     Active Substance: PALIPERIDONE
     Dosage: 9 MG, QD
     Route: 048
     Dates: start: 20131201, end: 20131204
  3. PALIPERIDONE [Concomitant]
     Active Substance: PALIPERIDONE
     Dosage: 6 MG, QD
     Route: 048
     Dates: start: 20131205, end: 20131211
  4. PALIPERIDONE [Concomitant]
     Active Substance: PALIPERIDONE
     Indication: SCHIZOPHRENIA, PARANOID TYPE
     Dosage: 12 MG, QD
     Route: 048
     Dates: start: 20131128, end: 20131130
  5. CLOZARIL [Suspect]
     Active Substance: CLOZAPINE
     Indication: SCHIZOPHRENIA, PARANOID TYPE
     Dosage: 12.5 MG, QD
     Route: 048
     Dates: start: 20131128, end: 20131128
  6. CLOZARIL [Suspect]
     Active Substance: CLOZAPINE
     Dosage: 50 MG, QD
     Route: 048
     Dates: start: 20131201, end: 20131204
  7. PICOSULFAT [Concomitant]
     Indication: CONSTIPATION PROPHYLAXIS
     Dosage: 5 MG, QD
     Route: 048
     Dates: start: 20131128
  8. PALIPERIDONE [Concomitant]
     Active Substance: PALIPERIDONE
     Dosage: 3 MG, QD
     Route: 048
     Dates: start: 20131212, end: 20131215
  9. SODIUM VALPROATE [Concomitant]
     Active Substance: VALPROATE SODIUM
     Indication: SCHIZOPHRENIA, PARANOID TYPE
     Dosage: 1200 MG, QD
     Route: 048
     Dates: start: 20131128
  10. MAGNESIUM [Concomitant]
     Active Substance: MAGNESIUM
     Indication: CONSTIPATION PROPHYLAXIS
     Dosage: 1000 MG, QD
     Route: 048
     Dates: start: 20131128
  11. CLOZARIL [Suspect]
     Active Substance: CLOZAPINE
     Dosage: 25 MG, QD
     Route: 048
     Dates: start: 20131129, end: 20131130
  12. SENNOSIDE [Concomitant]
     Active Substance: SENNOSIDES
     Indication: CONSTIPATION PROPHYLAXIS
     Dosage: 12 MG, QD
     Route: 048
     Dates: start: 20131128
  13. CLOZARIL [Suspect]
     Active Substance: CLOZAPINE
     Dosage: 100 MG, QD
     Route: 048
     Dates: start: 20131212, end: 20131215
  14. YOKUKANSAN [Concomitant]
     Active Substance: HERBALS
     Indication: SCHIZOPHRENIA, PARANOID TYPE
     Dosage: 7500 MG, QD
     Route: 048
     Dates: start: 20131128
  15. NITRAZEPAM [Concomitant]
     Active Substance: NITRAZEPAM
     Indication: SCHIZOPHRENIA, PARANOID TYPE
     Dosage: 10 MG, QD
     Route: 048
     Dates: start: 20131128
  16. BROTIZOLAM [Concomitant]
     Active Substance: BROTIZOLAM
     Indication: SCHIZOPHRENIA, PARANOID TYPE
     Dosage: 0.25 MG, QD
     Route: 048
     Dates: start: 20131128

REACTIONS (5)
  - Loss of consciousness [Unknown]
  - Cardio-respiratory arrest [Fatal]
  - Aspiration [Fatal]
  - Foreign body [Unknown]
  - Salivary hypersecretion [Unknown]

NARRATIVE: CASE EVENT DATE: 20131215
